FAERS Safety Report 13629658 (Version 1)
Quarter: 2017Q2

REPORT INFORMATION
  Report Type: Spontaneous
  Country: US (occurrence: US)
  Receive Date: 20170531
  Receipt Date: 20170531
  Transmission Date: 20170830
  Serious: No
  Sender: FDA-Public Use
  Company Number: US-ASTELLAS-1228339

PATIENT
  Age: 45 Year
  Sex: Female

DRUGS (9)
  1. TARCEVA [Suspect]
     Active Substance: ERLOTINIB HYDROCHLORIDE
     Indication: LUNG NEOPLASM MALIGNANT
     Dosage: DAILY
     Route: 048
  2. VALIUM [Concomitant]
     Active Substance: DIAZEPAM
  3. ABILIFY [Concomitant]
     Active Substance: ARIPIPRAZOLE
  4. PERCOCET [Concomitant]
     Active Substance: ACETAMINOPHEN\OXYCODONE HYDROCHLORIDE
  5. TARCEVA [Suspect]
     Active Substance: ERLOTINIB HYDROCHLORIDE
     Dosage: DAILY
     Route: 048
     Dates: start: 20130424
  6. TRILEPTAL [Concomitant]
     Active Substance: OXCARBAZEPINE
     Route: 048
  7. LORAZEPAM. [Concomitant]
     Active Substance: LORAZEPAM
  8. MORPHINE [Concomitant]
     Active Substance: MORPHINE
  9. NORCO [Concomitant]
     Active Substance: ACETAMINOPHEN\HYDROCODONE BITARTRATE
     Indication: PAIN

REACTIONS (7)
  - Chest pain [Recovered/Resolved]
  - Rash [Recovering/Resolving]
  - Blood bilirubin increased [Recovering/Resolving]
  - Dyspepsia [Not Recovered/Not Resolved]
  - Constipation [Unknown]
  - Memory impairment [Unknown]
  - Pain [Unknown]

NARRATIVE: CASE EVENT DATE: 20140324
